FAERS Safety Report 9293366 (Version 1)
Quarter: 2013Q2

REPORT INFORMATION
  Report Type: Spontaneous
  Country: US (occurrence: US)
  Receive Date: 20130516
  Receipt Date: 20130516
  Transmission Date: 20140414
  Serious: No
  Sender: FDA-Public Use
  Company Number: US-ASTRAZENECA-2013SE31011

PATIENT
  Sex: 0

DRUGS (3)
  1. CRESTOR [Suspect]
     Route: 048
  2. GREENSTONE [Suspect]
     Route: 065
  3. AMLODIPINE [Concomitant]

REACTIONS (2)
  - Arthritis [Unknown]
  - Pain [Unknown]
